FAERS Safety Report 8085996-1 (Version None)
Quarter: 2012Q1

REPORT INFORMATION
  Report Type: 
  Country: None (occurrence: None)
  Receive Date: 20120128
  Receipt Date: 20110411
  Transmission Date: 20120608
  Serious: No
  Sender: FDA-Public Use
  Company Number: US-ABBOTT-11P-163-0718915-00

PATIENT
  Age: 28 Year
  Sex: Male

DRUGS (2)
  1. NEURONTIN [Concomitant]
     Indication: INTERVERTEBRAL DISC PROTRUSION
  2. HUMIRA [Suspect]
     Indication: PSORIATIC ARTHROPATHY
     Dates: start: 20080601

REACTIONS (2)
  - FURUNCLE [None]
  - MUSCLE SPASMS [None]
